FAERS Safety Report 14021998 (Version 1)
Quarter: 2017Q3

REPORT INFORMATION
  Report Type: Spontaneous
  Country: US (occurrence: US)
  Receive Date: 20170928
  Receipt Date: 20170928
  Transmission Date: 20171128
  Serious: No
  Sender: FDA-Public Use
  Company Number: None

PATIENT
  Age: 57 Year
  Sex: Female
  Weight: 74.7 kg

DRUGS (1)
  1. LOSARTAN POTASSIUM. [Suspect]
     Active Substance: LOSARTAN POTASSIUM
     Indication: HYPERTENSION
     Dosage: ?          QUANTITY:30 TABLET(S);?
     Route: 048
     Dates: start: 20170911, end: 20170912

REACTIONS (6)
  - Pain [None]
  - Rash [None]
  - Hypersensitivity [None]
  - Therapy non-responder [None]
  - Pruritus [None]
  - Blister [None]

NARRATIVE: CASE EVENT DATE: 20170912
